FAERS Safety Report 23600467 (Version 1)
Quarter: 2024Q1

REPORT INFORMATION
  Report Type: Spontaneous
  Country: US (occurrence: US)
  Receive Date: 20240306
  Receipt Date: 20240306
  Transmission Date: 20240410
  Serious: No
  Sender: FDA-Public Use
  Company Number: US-APOTEX-2023AP007150

PATIENT
  Sex: Male

DRUGS (2)
  1. MODAFINIL [Suspect]
     Active Substance: MODAFINIL
     Indication: Somnolence
     Dosage: 200 MILLIGRAM (FOR 2-3 YEARS)
     Route: 065
  2. MODAFINIL [Suspect]
     Active Substance: MODAFINIL
     Indication: Narcolepsy

REACTIONS (4)
  - Fatigue [Unknown]
  - Product quality issue [Unknown]
  - Headache [Unknown]
  - Therapeutic product effect decreased [Unknown]

NARRATIVE: CASE EVENT DATE: 20230401
